FAERS Safety Report 26129088 (Version 1)
Quarter: 2025Q4

REPORT INFORMATION
  Report Type: Spontaneous
  Country: EU (occurrence: EU)
  Receive Date: 20251208
  Receipt Date: 20251208
  Transmission Date: 20260117
  Serious: Yes (Other)
  Sender: JOHNSON AND JOHNSON
  Company Number: EU-BAYER-2025A160095

PATIENT
  Age: 73 Year
  Sex: Female

DRUGS (3)
  1. XARELTO [Suspect]
     Active Substance: RIVAROXABAN
     Indication: Thrombosis
     Dosage: 15 MG
     Route: 048
  2. XARELTO [Suspect]
     Active Substance: RIVAROXABAN
     Dosage: 20 MG
  3. XARELTO [Suspect]
     Active Substance: RIVAROXABAN
     Dosage: 10 MG, QD
     Dates: start: 20251118

REACTIONS (2)
  - Blood pressure systolic increased [Unknown]
  - Headache [Unknown]

NARRATIVE: CASE EVENT DATE: 20250101
